FAERS Safety Report 10765954 (Version 1)
Quarter: 2015Q1

REPORT INFORMATION
  Report Type: Spontaneous
  Country: US (occurrence: US)
  Receive Date: 20150205
  Receipt Date: 20150205
  Transmission Date: 20150721
  Serious: Yes (Death, Hospitalization, Other)
  Sender: FDA-Public Use
  Company Number: US-PAR PHARMACEUTICAL, INC-2015SCPR010341

PATIENT

DRUGS (3)
  1. HEROIN [Suspect]
     Active Substance: DIACETYLMORPHINE
     Indication: PRODUCT USED FOR UNKNOWN INDICATION
     Dosage: UNK, UNKNOWN
     Route: 051
  2. FENTANYL. [Suspect]
     Active Substance: FENTANYL
     Indication: PRODUCT USED FOR UNKNOWN INDICATION
     Dosage: UNK, UNKNOWN, PARENTRAL + INGESTION
  3. DRUG, UNKNOWN [Suspect]
     Active Substance: UNSPECIFIED INGREDIENT
     Indication: PRODUCT USED FOR UNKNOWN INDICATION
     Dosage: UNK, UNKNOWN
     Route: 065

REACTIONS (14)
  - Cardiac arrest [Fatal]
  - Acute respiratory failure [Fatal]
  - Pneumonitis [Unknown]
  - Acute pulmonary oedema [Fatal]
  - Death [Fatal]
  - Lactic acidosis [Fatal]
  - Hypoxia [Fatal]
  - Unresponsive to stimuli [Unknown]
  - Hypothermia [Fatal]
  - Brain injury [Fatal]
  - Cardio-respiratory arrest [Fatal]
  - Acute kidney injury [Fatal]
  - Drug abuse [Fatal]
  - Overdose [Fatal]

NARRATIVE: CASE EVENT DATE: 201312
